FAERS Safety Report 18339788 (Version 2)
Quarter: 2020Q4

REPORT INFORMATION
  Report Type: Spontaneous
  Country: US (occurrence: US)
  Receive Date: 20201002
  Receipt Date: 20201016
  Transmission Date: 20210113
  Serious: Yes (Hospitalization, Other)
  Sender: FDA-Public Use
  Company Number: US-ASTRAZENECA-2020SF25347

PATIENT
  Age: 20883 Day
  Sex: Male
  Weight: 174.2 kg

DRUGS (42)
  1. ALBUTEROL SULFATE. [Concomitant]
     Active Substance: ALBUTEROL SULFATE
  2. GLIPIZIDE. [Concomitant]
     Active Substance: GLIPIZIDE
  3. NOVOLOG [Concomitant]
     Active Substance: INSULIN ASPART
  4. LANTUS [Concomitant]
     Active Substance: INSULIN GLARGINE
  5. HYDROMORPHONE [Concomitant]
     Active Substance: HYDROMORPHONE
  6. METFORMIN HCL [Concomitant]
     Active Substance: METFORMIN HYDROCHLORIDE
  7. FARXIGA [Suspect]
     Active Substance: DAPAGLIFLOZIN PROPANEDIOL
     Indication: TYPE 2 DIABETES MELLITUS
     Route: 048
     Dates: start: 201804, end: 201903
  8. HYDROCODONE-ACETAMIN [Concomitant]
     Active Substance: ACETAMINOPHEN\HYDROCODONE
  9. HEPARIN [Concomitant]
     Active Substance: HEPARIN SODIUM
  10. DEXTROSE. [Concomitant]
     Active Substance: DEXTROSE
  11. SUBLIMAZE [Concomitant]
     Active Substance: FENTANYL CITRATE
  12. BACITRACIN. [Concomitant]
     Active Substance: BACITRACIN
  13. ACETAMINOPHEN. [Concomitant]
     Active Substance: ACETAMINOPHEN
  14. QUETIAPINE FUMARATE. [Concomitant]
     Active Substance: QUETIAPINE FUMARATE
  15. ZOSYN [Concomitant]
     Active Substance: PIPERACILLIN SODIUM\TAZOBACTAM SODIUM
  16. FUROSEMIDE. [Concomitant]
     Active Substance: FUROSEMIDE
  17. VANCOMYCIN HCL [Concomitant]
     Active Substance: VANCOMYCIN HYDROCHLORIDE
  18. PANTOPRAZOLE SODIUM. [Concomitant]
     Active Substance: PANTOPRAZOLE SODIUM
  19. PROPOFOL. [Concomitant]
     Active Substance: PROPOFOL
  20. ALBUTEROL. [Concomitant]
     Active Substance: ALBUTEROL
  21. METHYLPREDNISOLONE. [Concomitant]
     Active Substance: METHYLPREDNISOLONE
  22. MAGNESIUM OXIDE. [Concomitant]
     Active Substance: MAGNESIUM OXIDE
  23. FAMOTIDINE. [Concomitant]
     Active Substance: FAMOTIDINE
  24. CLINDAMYCIN HCL [Concomitant]
     Active Substance: CLINDAMYCIN HYDROCHLORIDE
  25. SIMVASTATIN. [Concomitant]
     Active Substance: SIMVASTATIN
  26. PENICILLIN VK [Concomitant]
     Active Substance: PENICILLIN V POTASSIUM
  27. VIGAMOX [Concomitant]
     Active Substance: MOXIFLOXACIN HYDROCHLORIDE
  28. MELATONIN [Concomitant]
     Active Substance: MELATONIN
  29. OXYCODONE [Concomitant]
     Active Substance: OXYCODONE
  30. SODIUM CHLORIDE. [Concomitant]
     Active Substance: SODIUM CHLORIDE
  31. POTASSIUM CHLORIDE. [Concomitant]
     Active Substance: POTASSIUM CHLORIDE
  32. CEFEPIME [Concomitant]
     Active Substance: CEFEPIME HYDROCHLORIDE
  33. FARXIGA [Suspect]
     Active Substance: DAPAGLIFLOZIN PROPANEDIOL
     Indication: BLOOD PRESSURE DECREASED
     Route: 048
     Dates: start: 201804, end: 201903
  34. NITROGLYCERINE [Concomitant]
     Active Substance: NITROGLYCERIN
  35. HEPARIN SODIUM. [Concomitant]
     Active Substance: HEPARIN SODIUM
  36. LISINOPRIL. [Concomitant]
     Active Substance: LISINOPRIL
  37. FARXIGA [Suspect]
     Active Substance: DAPAGLIFLOZIN PROPANEDIOL
     Indication: WEIGHT DECREASED
     Route: 048
     Dates: start: 201804, end: 201903
  38. DUREZOL [Concomitant]
     Active Substance: DIFLUPREDNATE
  39. FERROUS SULFATE. [Concomitant]
     Active Substance: FERROUS SULFATE
  40. METOPROLOL TARTRATE. [Concomitant]
     Active Substance: METOPROLOL TARTRATE
  41. AZITHROMYCIN ANHYDROUS. [Concomitant]
     Active Substance: AZITHROMYCIN ANHYDROUS
  42. LACTULOSE. [Concomitant]
     Active Substance: LACTULOSE

REACTIONS (11)
  - Fournier^s gangrene [Unknown]
  - Necrotising fasciitis [Unknown]
  - Pain [Unknown]
  - Anal incontinence [Unknown]
  - Cellulitis [Unknown]
  - Abscess limb [Unknown]
  - Streptococcal sepsis [Unknown]
  - Scar [Unknown]
  - Septic shock [Unknown]
  - Sepsis [Unknown]
  - Nerve injury [Unknown]

NARRATIVE: CASE EVENT DATE: 20190210
